FAERS Safety Report 8117025-5 (Version None)
Quarter: 2011Q4

REPORT INFORMATION
  Report Type: 
  Country: None (occurrence: None)
  Receive Date: 20111227
  Receipt Date: 20110329
  Transmission Date: 20120403
  Serious: Yes (Other)
  Sender: FDA-Public Use
  Company Number: PHHY2011US26172

PATIENT

DRUGS (4)
  1. FEMARA [Suspect]
     Dosage: 2.5 MG,
     Dates: start: 20090501, end: 20110307
  2. OXYCODONE HCL [Concomitant]
  3. MULTI-VITAMINS [Concomitant]
  4. MORPHINE [Concomitant]

REACTIONS (3)
  - DRUG RESISTANCE [None]
  - METASTASES TO PERITONEUM [None]
  - METASTASES TO OVARY [None]
